FAERS Safety Report 24272223 (Version 1)
Quarter: 2024Q3

REPORT INFORMATION
  Report Type: Report from Study
  Country: CN (occurrence: CN)
  Receive Date: 20240902
  Receipt Date: 20240902
  Transmission Date: 20241017
  Serious: Yes (Death, Hospitalization)
  Sender: ROCHE
  Company Number: CN-ROCHE-10000069799

PATIENT

DRUGS (6)
  1. RITUXIMAB [Suspect]
     Active Substance: RITUXIMAB
     Indication: Anti-neutrophil cytoplasmic antibody positive vasculitis
     Dosage: FOR 4 WEEKS OR A SINGLE 1 G INTRAVENOUS DRIP ON DAYS 1 AND 15.?500 MG OR 600 MG, ONCE ON DAYS 1 AND
     Route: 042
  2. CYCLOPHOSPHAMIDE [Suspect]
     Active Substance: CYCLOPHOSPHAMIDE
     Indication: Anti-neutrophil cytoplasmic antibody positive vasculitis
     Dosage: 0.4 G, 0.6 G EVERY 2 WEEKS; OR 0.4 G WEEKLY. AFTER 3 TIMES, IT IS CHANGED TO ONCE EVERY 3 TO 4 WEEKS
     Route: 065
  3. METHYLPREDNISOLONE [Suspect]
     Active Substance: METHYLPREDNISOLONE
     Indication: Anti-neutrophil cytoplasmic antibody positive vasculitis
     Dosage: 1 TO 2 WEEKS [INITIAL DOSE OF 0.5 TO 1.0 MG PER KG EVERY DAY)-1
     Route: 042
  4. PREDNISONE [Suspect]
     Active Substance: PREDNISONE
     Indication: Anti-neutrophil cytoplasmic antibody positive vasculitis
     Route: 048
  5. METHOTREXATE [Concomitant]
     Active Substance: METHOTREXATE
  6. AZATHIOPRINE [Concomitant]
     Active Substance: AZATHIOPRINE

REACTIONS (6)
  - Off label use [Unknown]
  - Infection [Fatal]
  - Hypogammaglobulinaemia [Unknown]
  - Hepatitis B [Unknown]
  - Infusion related reaction [Unknown]
  - Steroid diabetes [Unknown]
